FAERS Safety Report 9549495 (Version 1)
Quarter: 2013Q3

REPORT INFORMATION
  Report Type: Spontaneous
  Country: US (occurrence: US)
  Receive Date: 20130924
  Receipt Date: 20130924
  Transmission Date: 20140515
  Serious: Yes (Death)
  Sender: FDA-Public Use
  Company Number: US-BRISTOL-MYERS SQUIBB COMPANY-19375724

PATIENT
  Age: 64 Year
  Sex: Male

DRUGS (3)
  1. ABILIFY [Suspect]
  2. XIFAXAN [Concomitant]
  3. GEODON [Concomitant]

REACTIONS (1)
  - Death [Fatal]
